FAERS Safety Report 24755847 (Version 1)
Quarter: 2024Q4

REPORT INFORMATION
  Report Type: Spontaneous
  Country: US (occurrence: US)
  Receive Date: 20241219
  Receipt Date: 20241219
  Transmission Date: 20250115
  Serious: No
  Sender: STALLERGENES
  Company Number: US-STALCOR-2024-AER-02636

PATIENT
  Sex: Female
  Weight: 56.7 kg

DRUGS (10)
  1. DILUENT (SODIUM CHLORIDE) [Suspect]
     Active Substance: SODIUM CHLORIDE
     Indication: Seasonal allergy
     Route: 058
  2. STANDARDIZED BERMUDA GRASS [Suspect]
     Active Substance: CYNODON DACTYLON POLLEN
     Indication: Seasonal allergy
     Route: 058
  3. PHLEUM PRATENSE POLLEN [Suspect]
     Active Substance: PHLEUM PRATENSE POLLEN
     Indication: Seasonal allergy
     Route: 058
  4. CEDAR ELM [Suspect]
     Active Substance: ULMUS CRASSIFOLIA POLLEN
     Indication: Seasonal allergy
     Route: 058
  5. EASTERN 10 TREE POLLEN MIX [Suspect]
     Active Substance: ACER SACCHARUM POLLEN\BETULA NIGRA POLLEN\CARYA OVATA POLLEN\FAGUS GRANDIFOLIA POLLEN\FRAXINUS AMERI
     Indication: Seasonal allergy
     Route: 058
  6. BLACK WALNUT (JUGLANS NIGRA POLLEN) [Suspect]
     Active Substance: JUGLANS NIGRA POLLEN
     Indication: Seasonal allergy
     Route: 058
  7. RAGWEED MIXTURE [Suspect]
     Active Substance: AMBROSIA ARTEMISIIFOLIA POLLEN\AMBROSIA BIDENTATA POLLEN\AMBROSIA PSILOSTACHYA POLLEN\AMBROSIA TRIFI
     Indication: Seasonal allergy
     Route: 058
  8. 3 WEED MIX [Suspect]
     Active Substance: AMARANTHUS RETROFLEXUS POLLEN\CHENOPODIUM ALBUM POLLEN\XANTHIUM STRUMARIUM POLLEN
     Indication: Seasonal allergy
     Route: 058
  9. ALLERGENIC EXTRACTS [Suspect]
     Active Substance: ALLERGENIC EXTRACTS
     Indication: Seasonal allergy
     Route: 058
  10. MOLD MIX 1 [Suspect]
     Active Substance: ALTERNARIA ALTERNATA\ASPERGILLUS NIGER VAR. NIGER\CLADOSPORIUM SPHAEROSPERMUM
     Indication: Seasonal allergy
     Route: 058

REACTIONS (2)
  - Swelling [Recovered/Resolved]
  - Injection site reaction [Recovered/Resolved]
